FAERS Safety Report 25946635 (Version 1)
Quarter: 2025Q4

REPORT INFORMATION
  Report Type: Spontaneous
  Country: EU (occurrence: EU)
  Receive Date: 20251022
  Receipt Date: 20251022
  Transmission Date: 20260118
  Serious: Yes (Death, Hospitalization)
  Sender: ALEXION PHARMACEUTICALS
  Company Number: EU-DCGMA-25205799

PATIENT
  Age: 80 Year
  Sex: Female
  Weight: 73 kg

DRUGS (9)
  1. TEZSPIRE [Suspect]
     Active Substance: TEZEPELUMAB-EKKO
     Indication: Asthmatic crisis
     Dates: start: 20250624, end: 20250722
  2. TEZSPIRE [Suspect]
     Active Substance: TEZEPELUMAB-EKKO
  3. CANDESARTAN [Concomitant]
     Active Substance: CANDESARTAN
     Dosage: 16 MG 0.5-0-0.5
  4. EZETIMIBE\SIMVASTATIN [Concomitant]
     Active Substance: EZETIMIBE\SIMVASTATIN
     Dosage: 10/40 MG
  5. METOPROLOL [Concomitant]
     Active Substance: METOPROLOL
     Dosage: 95 MG 1-0-1
  6. Beclometasone dipropionate;Formoterol fumarate;Glycopyrronium bromide [Concomitant]
     Dosage: 172/5/9 ?G 2-0-2
  7. MONTELUKAST [Concomitant]
     Active Substance: MONTELUKAST
     Dosage: DAILY DOSE: 10 MG EVERY 1 DAY
  8. PREDNISOLONE [Concomitant]
     Active Substance: PREDNISOLONE
     Dosage: DAILY DOSE: 5 MG EVERY 1 DAY
  9. EDOXABAN [Concomitant]
     Active Substance: EDOXABAN
     Dosage: DAILY DOSE: 60 MG EVERY 1 DAY

REACTIONS (4)
  - Dyspnoea [Not Recovered/Not Resolved]
  - Pulseless electrical activity [Fatal]
  - Death [Fatal]
  - Cardiac failure [Not Recovered/Not Resolved]

NARRATIVE: CASE EVENT DATE: 20250820
